FAERS Safety Report 7808970-6 (Version None)
Quarter: 2011Q4

REPORT INFORMATION
  Report Type: 
  Country: None (occurrence: None)
  Receive Date: 20111012
  Receipt Date: 20110930
  Transmission Date: 20120403
  Serious: Yes (Hospitalization, Other)
  Sender: FDA-Public Use
  Company Number: AT-BRISTOL-MYERS SQUIBB COMPANY-16151151

PATIENT
  Age: 30 Year
  Sex: Male
  Weight: 95 kg

DRUGS (5)
  1. ESCITALOPRAM [Suspect]
     Dates: start: 20100601
  2. DOMINAL [Suspect]
     Dates: start: 20100601
  3. ABILIFY [Suspect]
     Dosage: ALSO 10MG ON FEB2011(DOSE NOT CHANGED)
     Dates: start: 20110101
  4. VENLAFAXINE HCL [Suspect]
     Dates: start: 20100101, end: 20100601
  5. SEROQUEL [Suspect]
     Dates: start: 20100101, end: 20100201

REACTIONS (2)
  - EATING DISORDER [None]
  - WEIGHT INCREASED [None]
